FAERS Safety Report 23779118 (Version 1)
Quarter: 2024Q2

REPORT INFORMATION
  Report Type: Spontaneous
  Country: GB (occurrence: GB)
  Receive Date: 20240424
  Receipt Date: 20240424
  Transmission Date: 20240716
  Serious: Yes (Other)
  Sender: FDA-Public Use
  Company Number: GB-TEVA-VS-3187170

PATIENT
  Sex: Male

DRUGS (4)
  1. PREGABALIN [Suspect]
     Active Substance: PREGABALIN
     Indication: Intellectual disability
     Route: 065
  2. PREGABALIN [Suspect]
     Active Substance: PREGABALIN
     Indication: Intellectual disability
     Route: 065
  3. EPILIM [Concomitant]
     Active Substance: VALPROATE SODIUM
     Indication: Intellectual disability
     Route: 065
  4. RISPERIDONE [Suspect]
     Active Substance: RISPERIDONE
     Indication: Intellectual disability
     Route: 065

REACTIONS (2)
  - Seizure [Unknown]
  - Off label use [Unknown]
